FAERS Safety Report 16856343 (Version 3)
Quarter: 2019Q4

REPORT INFORMATION
  Report Type: Spontaneous
  Country: US (occurrence: US)
  Receive Date: 20190926
  Receipt Date: 20191007
  Transmission Date: 20200122
  Serious: No
  Sender: FDA-Public Use
  Company Number: US-PFIZER INC-2019416608

PATIENT
  Age: 60 Year
  Sex: Male
  Weight: 88.45 kg

DRUGS (4)
  1. LYRICA [Suspect]
     Active Substance: PREGABALIN
     Indication: HYPERSENSITIVITY
     Dosage: 150 MG, 3X/DAY (450MG EVERY 24 HOURS)
     Route: 048
  2. LYRICA [Suspect]
     Active Substance: PREGABALIN
     Dosage: 100 MG, 3X/DAY (TAKES 300MG NOW)
     Route: 048
  3. LYRICA [Suspect]
     Active Substance: PREGABALIN
     Dosage: UNK
  4. LYRICA [Suspect]
     Active Substance: PREGABALIN
     Indication: BURNING SENSATION
     Dosage: UNK (LOWER DOSE)
     Dates: start: 2017

REACTIONS (1)
  - Therapeutic product effect incomplete [Unknown]
